FAERS Safety Report 19138553 (Version 1)
Quarter: 2021Q2

REPORT INFORMATION
  Report Type: Spontaneous
  Country: FR (occurrence: FR)
  Receive Date: 20210415
  Receipt Date: 20210415
  Transmission Date: 20210717
  Serious: Yes (Other)
  Sender: FDA-Public Use
  Company Number: FR-TEVA-2021-FR-1900212

PATIENT
  Age: 86 Year
  Sex: Male

DRUGS (5)
  1. ZONEGRAN [Suspect]
     Active Substance: ZONISAMIDE
     Indication: EPILEPSY
     Dosage: 3 DOSAGE FORMS
     Route: 048
  2. EUTHYROX 75 MICROGRAMMES COMPRIMES [Concomitant]
     Indication: THYROID DISORDER
     Dosage: 1 DOSAGE FORMS
     Route: 048
  3. LAMOTRIGINE. [Suspect]
     Active Substance: LAMOTRIGINE
     Indication: EPILEPSY
     Dosage: 100 MG
     Route: 048
  4. CARBAMAZEPINE. [Suspect]
     Active Substance: CARBAMAZEPINE
     Indication: EPILEPSY
     Dosage: 400 MG
     Route: 048
  5. FORTZAAR 100 MG/25 MG, COMPRIME PELLICULE [Suspect]
     Active Substance: HYDROCHLOROTHIAZIDE\LOSARTAN POTASSIUM
     Indication: CARDIOVASCULAR DISORDER
     Dosage: 1 DOSAGE FORMS
     Route: 048

REACTIONS (3)
  - Hypotension [Recovered/Resolved]
  - Wrong schedule [Recovered/Resolved]
  - Somnolence [Recovered/Resolved]

NARRATIVE: CASE EVENT DATE: 20210119
